FAERS Safety Report 6160616-1 (Version None)
Quarter: 2009Q2

REPORT INFORMATION
  Report Type: 
  Country: None (occurrence: None)
  Receive Date: 20090416
  Receipt Date: 20090406
  Transmission Date: 20091009
  Serious: Yes (Hospitalization, Other)
  Sender: FDA-Public Use
  Company Number: ADE2009-0545

PATIENT
  Age: 32 Year
  Sex: Male

DRUGS (7)
  1. ZIDOVUDINE [Suspect]
     Indication: PROGRESSIVE MULTIFOCAL LEUKOENCEPHALOPATHY
  2. LAMIVUDINE [Suspect]
     Indication: PROGRESSIVE MULTIFOCAL LEUKOENCEPHALOPATHY
  3. LOPINAVIR AND RITONAVIR [Suspect]
     Indication: PROGRESSIVE MULTIFOCAL LEUKOENCEPHALOPATHY
  4. SULFADIAZINE [Suspect]
     Indication: CEREBRAL TOXOPLASMOSIS
  5. PYRIMETHAMINE TAB [Suspect]
     Indication: CEREBRAL TOXOPLASMOSIS
  6. DEXAMETHASONE [Concomitant]
  7. CARBAMAZEPINE [Concomitant]

REACTIONS (7)
  - ABNORMAL BEHAVIOUR [None]
  - ASPERGILLOSIS [None]
  - EYELID PTOSIS [None]
  - OCULAR HYPERAEMIA [None]
  - ORAL CANDIDIASIS [None]
  - PANCYTOPENIA [None]
  - PURULENT DISCHARGE [None]
